FAERS Safety Report 5730952-9 (Version None)
Quarter: 2008Q2

REPORT INFORMATION
  Report Type: 
  Country: None (occurrence: None)
  Receive Date: 20080430
  Receipt Date: 20071213
  Transmission Date: 20081010
  Serious: No
  Sender: FDA-Public Use
  Company Number: 2007PV033842

PATIENT
  Age: 42 Year
  Sex: Female
  Weight: 60.3284 kg

DRUGS (5)
  1. SYMLIN [Suspect]
     Indication: TYPE 1 DIABETES MELLITUS
     Dosage: 48 MCG;SC ; 45 MCG;SC ; 30 MCG;SC ; 15 MCG;SC
     Route: 058
     Dates: start: 20071204, end: 20071206
  2. SYMLIN [Suspect]
     Indication: TYPE 1 DIABETES MELLITUS
     Dosage: 48 MCG;SC ; 45 MCG;SC ; 30 MCG;SC ; 15 MCG;SC
     Route: 058
     Dates: start: 20071207, end: 20071209
  3. SYMLIN [Suspect]
     Indication: TYPE 1 DIABETES MELLITUS
     Dosage: 48 MCG;SC ; 45 MCG;SC ; 30 MCG;SC ; 15 MCG;SC
     Route: 058
     Dates: start: 20071210, end: 20071212
  4. SYMLIN [Suspect]
     Indication: TYPE 1 DIABETES MELLITUS
     Dosage: 48 MCG;SC ; 45 MCG;SC ; 30 MCG;SC ; 15 MCG;SC
     Route: 058
     Dates: start: 20071213
  5. APIDRA [Concomitant]

REACTIONS (3)
  - BLOOD GLUCOSE INCREASED [None]
  - FATIGUE [None]
  - NAUSEA [None]
